FAERS Safety Report 8299803-5 (Version None)
Quarter: 2012Q2

REPORT INFORMATION
  Report Type: 
  Country: None (occurrence: None)
  Receive Date: 20120419
  Receipt Date: 20120419
  Transmission Date: 20120825
  Serious: Yes (Other)
  Sender: FDA-Public Use
  Company Number: None

PATIENT
  Age: 30 Year
  Sex: Male
  Weight: 108.86 kg

DRUGS (2)
  1. CYMBALTA [Concomitant]
     Dates: start: 20110901, end: 20120401
  2. CYMBALTA [Suspect]
     Indication: ANXIETY
     Dosage: 90MG
     Route: 048
     Dates: start: 20090801, end: 20110901

REACTIONS (18)
  - DRY MOUTH [None]
  - ASTHENIA [None]
  - ANGER [None]
  - DIZZINESS [None]
  - VERTIGO [None]
  - SLUGGISHNESS [None]
  - THIRST [None]
  - MALAISE [None]
  - PARAESTHESIA [None]
  - MOOD ALTERED [None]
  - SOMNOLENCE [None]
  - PALPITATIONS [None]
  - ANXIETY [None]
  - INSOMNIA [None]
  - ABNORMAL DREAMS [None]
  - APPETITE DISORDER [None]
  - QUALITY OF LIFE DECREASED [None]
  - DISCOMFORT [None]
